FAERS Safety Report 6390553-9 (Version None)
Quarter: 2009Q4

REPORT INFORMATION
  Report Type: 
  Country: None (occurrence: None)
  Receive Date: 20091006
  Receipt Date: 20090923
  Transmission Date: 20100525
  Serious: Yes (Other)
  Sender: FDA-Public Use
  Company Number: US-PFIZER INC-2008099265

PATIENT
  Sex: Female
  Weight: 67.574 kg

DRUGS (8)
  1. LYRICA [Suspect]
     Indication: NEURALGIA
     Dosage: 50 MG, 3X/DAY
     Route: 048
     Dates: start: 20050101, end: 20080801
  2. DETROL LA [Suspect]
     Indication: HYPERTONIC BLADDER
     Dosage: 4 MG, 1X/DAY
     Dates: start: 20080929
  3. DETROL LA [Suspect]
     Indication: BLADDER DISORDER
  4. XANAX [Concomitant]
     Indication: MUSCLE SPASMS
  5. XANAX [Concomitant]
     Indication: PAIN
  6. PREMARIN [Concomitant]
  7. HYDROCODONE [Concomitant]
  8. BACLOFEN [Concomitant]
     Dosage: 10 MG, 3X/DAY

REACTIONS (2)
  - GLAUCOMA [None]
  - VISUAL FIELD DEFECT [None]
